FAERS Safety Report 18530857 (Version 2)
Quarter: 2021Q1

REPORT INFORMATION
  Report Type: Report from Study
  Country: US (occurrence: US)
  Receive Date: 20201121
  Receipt Date: 20210212
  Transmission Date: 20210419
  Serious: Yes (Hospitalization, Other)
  Sender: FDA-Public Use
  Company Number: US-TAKEDA-2020TUS045131

PATIENT
  Age: 69 Year
  Sex: Female
  Weight: 63.04 kg

DRUGS (20)
  1. TEDUGLUTIDE [Suspect]
     Active Substance: TEDUGLUTIDE
     Indication: SHORT-BOWEL SYNDROME
     Dosage: 0.314 MILLILITER, QOD
     Route: 058
     Dates: start: 20190211, end: 20201016
  2. TEDUGLUTIDE [Suspect]
     Active Substance: TEDUGLUTIDE
     Dosage: 0.314 MILLILITER, QD
     Route: 058
     Dates: start: 20190211
  3. LOPERAMIDE [Concomitant]
     Active Substance: LOPERAMIDE
     Dosage: 2 MILLIGRAM
  4. TEDUGLUTIDE [Suspect]
     Active Substance: TEDUGLUTIDE
     Dosage: 0.314 MILLILITER
     Route: 058
     Dates: start: 20201023
  5. TEDUGLUTIDE [Suspect]
     Active Substance: TEDUGLUTIDE
     Dosage: 0.314 MILLILITER
     Route: 058
  6. TEDUGLUTIDE [Suspect]
     Active Substance: TEDUGLUTIDE
     Indication: SHORT-BOWEL SYNDROME
     Dosage: 0.314 MILLILITER, QOD
     Route: 058
     Dates: start: 20190211, end: 20201016
  7. TEDUGLUTIDE [Suspect]
     Active Substance: TEDUGLUTIDE
     Dosage: 0.314 MILLILITER
     Route: 058
  8. TEDUGLUTIDE [Suspect]
     Active Substance: TEDUGLUTIDE
     Dosage: 0.314 MILLILITER, QD
     Route: 058
     Dates: start: 20190211
  9. TEDUGLUTIDE [Suspect]
     Active Substance: TEDUGLUTIDE
     Dosage: 0.314 MILLILITER, QD
     Route: 058
     Dates: start: 20190211
  10. LEVOTHYROXINE SODIUM. [Concomitant]
     Active Substance: LEVOTHYROXINE SODIUM
     Dosage: 150 MICROGRAM
  11. TEDUGLUTIDE [Suspect]
     Active Substance: TEDUGLUTIDE
     Dosage: 0.314 MILLILITER
     Route: 058
     Dates: start: 20201023
  12. TEDUGLUTIDE [Suspect]
     Active Substance: TEDUGLUTIDE
     Dosage: 0.314 MILLILITER
     Route: 058
     Dates: start: 20201023
  13. TEDUGLUTIDE [Suspect]
     Active Substance: TEDUGLUTIDE
     Dosage: 0.314 MILLILITER, QD
     Route: 058
     Dates: start: 20190211
  14. TEDUGLUTIDE [Suspect]
     Active Substance: TEDUGLUTIDE
     Dosage: 0.314 MILLILITER
     Route: 058
  15. TEDUGLUTIDE [Suspect]
     Active Substance: TEDUGLUTIDE
     Dosage: 0.314 MILLILITER
     Route: 058
  16. LISINOPRIL. [Concomitant]
     Active Substance: LISINOPRIL
     Dosage: 10 MILLIGRAM
  17. TEDUGLUTIDE [Suspect]
     Active Substance: TEDUGLUTIDE
     Dosage: 0.314 MILLILITER
     Route: 058
     Dates: start: 20201023
  18. TEDUGLUTIDE [Suspect]
     Active Substance: TEDUGLUTIDE
     Indication: SHORT-BOWEL SYNDROME
     Dosage: 0.314 MILLILITER, QOD
     Route: 058
     Dates: start: 20190211, end: 20201016
  19. TEDUGLUTIDE [Suspect]
     Active Substance: TEDUGLUTIDE
     Indication: SHORT-BOWEL SYNDROME
     Dosage: 0.314 MILLILITER, QOD
     Route: 058
     Dates: start: 20190211, end: 20201016
  20. OMEPRAZOLE. [Concomitant]
     Active Substance: OMEPRAZOLE
     Dosage: 20 MILLIGRAM

REACTIONS (4)
  - Lipase increased [Not Recovered/Not Resolved]
  - Device related infection [Recovered/Resolved]
  - Pancreatic disorder [Not Recovered/Not Resolved]
  - Pancreatic calcification [Unknown]

NARRATIVE: CASE EVENT DATE: 20190619
